FAERS Safety Report 6807101-9 (Version None)
Quarter: 2010Q2

REPORT INFORMATION
  Report Type: 
  Country: None (occurrence: None)
  Receive Date: 20100629
  Receipt Date: 20080624
  Transmission Date: 20101027
  Serious: Yes (Other)
  Sender: FDA-Public Use
  Company Number: US-PFIZER INC-2008053392

PATIENT
  Sex: Female
  Weight: 111.81 kg

DRUGS (37)
  1. REVATIO [Suspect]
     Indication: PULMONARY HYPERTENSION
     Dates: start: 20080126
  2. INSULIN [Concomitant]
  3. XANAX [Concomitant]
  4. ASTELIN [Concomitant]
  5. CLONIDINE [Concomitant]
  6. DILTIAZEM [Concomitant]
  7. BENADRYL [Concomitant]
  8. FERROUS SULFATE TAB [Concomitant]
  9. FOLIC ACID [Concomitant]
  10. DOCUSATE SODIUM [Concomitant]
  11. HYDRALAZINE HCL [Concomitant]
  12. HYDRALAZINE HCL [Concomitant]
  13. LABETALOL HCL [Concomitant]
  14. LABETALOL HCL [Concomitant]
  15. ATIVAN [Concomitant]
  16. ATIVAN [Concomitant]
  17. LANTUS [Concomitant]
  18. LANTUS [Concomitant]
  19. LEXAPRO [Concomitant]
  20. LEXAPRO [Concomitant]
  21. LORAZEPAM [Concomitant]
  22. LORAZEPAM [Concomitant]
  23. MAALOX PLUS [Concomitant]
  24. MAALOX PLUS [Concomitant]
  25. REGLAN [Concomitant]
  26. REGLAN [Concomitant]
  27. TYLENOL [Concomitant]
  28. TYLENOL [Concomitant]
  29. NORVASC [Concomitant]
  30. NYSTATIN [Concomitant]
  31. ZOFRAN [Concomitant]
  32. NOVOLOG [Concomitant]
  33. PREDNISONE [Concomitant]
  34. PREVACID [Concomitant]
  35. BACTRIM DS [Concomitant]
  36. PROCRIT [Concomitant]
  37. ZMAX [Concomitant]

REACTIONS (1)
  - DEAFNESS [None]
